FAERS Safety Report 16040805 (Version 1)
Quarter: 2019Q1

REPORT INFORMATION
  Report Type: Spontaneous
  Country: GB (occurrence: GB)
  Receive Date: 20190306
  Receipt Date: 20190306
  Transmission Date: 20190418
  Serious: Yes (Life-Threatening)
  Sender: FDA-Public Use
  Company Number: PHHY2018GB201503

PATIENT
  Age: 61 Year
  Sex: Male
  Weight: 61 kg

DRUGS (4)
  1. HYDROCORTISONE. [Concomitant]
     Active Substance: HYDROCORTISONE
     Indication: PRODUCT USED FOR UNKNOWN INDICATION
     Route: 065
  2. TAZOCIN [Concomitant]
     Active Substance: PIPERACILLIN SODIUM\TAZOBACTAM SODIUM
     Indication: PRODUCT USED FOR UNKNOWN INDICATION
     Route: 065
  3. GENTAMICIN. [Concomitant]
     Active Substance: GENTAMICIN
     Indication: PRODUCT USED FOR UNKNOWN INDICATION
     Route: 065
  4. EXEMBOL [Suspect]
     Active Substance: ARGATROBAN
     Indication: PRODUCT USED FOR UNKNOWN INDICATION
     Dosage: UNK
     Route: 042
     Dates: start: 20181214, end: 20181218

REACTIONS (1)
  - Sinus bradycardia [Recovered/Resolved]

NARRATIVE: CASE EVENT DATE: 20181216
